FAERS Safety Report 6183034-9 (Version None)
Quarter: 2009Q2

REPORT INFORMATION
  Report Type: 
  Country: None (occurrence: None)
  Receive Date: 20090507
  Receipt Date: 20090505
  Transmission Date: 20091009
  Serious: Yes (Hospitalization)
  Sender: FDA-Public Use
  Company Number: FR-ASTRAZENECA-2009CG00871

PATIENT
  Sex: Male

DRUGS (2)
  1. SYMBICORT [Suspect]
     Indication: CHRONIC OBSTRUCTIVE PULMONARY DISEASE
     Dosage: 320/9 UG PER DOSE, ONE INHALATION TWICE DAILY
     Route: 055
     Dates: end: 20090401
  2. SYMBICORT [Suspect]
     Dosage: 320/9 UG PER DOSE, ONE INHALATION TWICE DAILY
     Route: 055
     Dates: start: 20090401

REACTIONS (1)
  - CHRONIC OBSTRUCTIVE PULMONARY DISEASE [None]
